FAERS Safety Report 25823897 (Version 1)
Quarter: 2025Q3

REPORT INFORMATION
  Report Type: Spontaneous
  Country: US (occurrence: US)
  Receive Date: 20250919
  Receipt Date: 20250919
  Transmission Date: 20251020
  Serious: No
  Sender: ANI
  Company Number: US-ANIPHARMA-2025-US-024373

PATIENT
  Age: 58 Year
  Sex: Female

DRUGS (20)
  1. CORTICOTROPIN [Suspect]
     Active Substance: CORTICOTROPIN
     Indication: Psoriatic arthropathy
     Route: 058
  2. LOSARTAN POTASSIUM [Concomitant]
     Active Substance: LOSARTAN POTASSIUM
  3. VENLAFAXINE HYDROCHLORIDE [Concomitant]
     Active Substance: VENLAFAXINE HYDROCHLORIDE
  4. D-3-5 [Concomitant]
  5. IRON [Concomitant]
     Active Substance: IRON
  6. KRILL OIL OMEGA-3 [Concomitant]
  7. BIOTIN [Concomitant]
     Active Substance: BIOTIN
  8. FOLIC ACID [Concomitant]
     Active Substance: FOLIC ACID
  9. BACLOFEN [Concomitant]
     Active Substance: BACLOFEN
  10. ALEVE [Concomitant]
     Active Substance: NAPROXEN SODIUM
  11. PREDNISONE [Concomitant]
     Active Substance: PREDNISONE
  12. VITAMINS [Concomitant]
     Active Substance: VITAMINS
  13. ORENCIA [Concomitant]
     Active Substance: ABATACEPT
  14. CALTRATE 600+D PLUS MINERALS [Concomitant]
  15. VEOZAH [Concomitant]
     Active Substance: FEZOLINETANT
  16. GABAPENTIN [Concomitant]
     Active Substance: GABAPENTIN
  17. TRAMADOL HCL [Concomitant]
     Active Substance: TRAMADOL HYDROCHLORIDE
  18. ARMODAFINIL [Concomitant]
     Active Substance: ARMODAFINIL
  19. HERBALS\TURMERIC [Concomitant]
     Active Substance: HERBALS\TURMERIC
  20. METOPROLOL SUCCINATE [Concomitant]
     Active Substance: METOPROLOL SUCCINATE

REACTIONS (4)
  - Blood pressure increased [Unknown]
  - Hair growth abnormal [Unknown]
  - Abnormal weight gain [Unknown]
  - Product administration interrupted [Unknown]
